FAERS Safety Report 6370817-5 (Version None)
Quarter: 2009Q3

REPORT INFORMATION
  Report Type: 
  Country: None (occurrence: None)
  Receive Date: 20090923
  Receipt Date: 20070618
  Transmission Date: 20100115
  Serious: Yes (Other)
  Sender: FDA-Public Use
  Company Number: US-ASTRAZENECA-2006UW23978

PATIENT
  Sex: Female
  Weight: 70.3 kg

DRUGS (17)
  1. SEROQUEL [Suspect]
     Indication: BIPOLAR DISORDER
     Route: 048
     Dates: start: 20030721
  2. SEROQUEL [Suspect]
     Dosage: 25 - 600 MG
     Route: 048
     Dates: start: 20030101
  3. ZYPREXA [Suspect]
     Dosage: 5-20 MG
     Route: 065
     Dates: start: 20000606
  4. ABILIFY [Concomitant]
     Dosage: 10-20 MG
     Dates: start: 20031206
  5. RISPERDAL [Concomitant]
     Dosage: 1-3 MG
     Dates: start: 20010719
  6. AMANTADINE HCL [Concomitant]
     Dates: start: 20030918
  7. LAMICTAL [Concomitant]
     Dates: start: 20030519
  8. TRAZODONE [Concomitant]
     Dates: start: 20010816
  9. MIRTAZAPINE [Concomitant]
     Dates: start: 20031009
  10. HYDROCODONE [Concomitant]
     Dosage: 7.5/500
     Dates: start: 20050714
  11. MIDODRINE HYDROCHLORIDE [Concomitant]
     Dates: start: 20040708
  12. PREVACID [Concomitant]
     Dates: start: 20040317
  13. RANITIDINE [Concomitant]
     Dates: start: 20040129
  14. LORAZEPAM [Concomitant]
     Dates: start: 20031230
  15. KLONOPIN [Concomitant]
     Dates: start: 20031020
  16. BENZTROPINE MESYLATE [Concomitant]
     Dosage: 0.5-2 MG
     Dates: start: 20000816
  17. FAMOTIDINE [Concomitant]
     Dates: start: 20030516

REACTIONS (1)
  - TARDIVE DYSKINESIA [None]
